FAERS Safety Report 6761140-5 (Version None)
Quarter: 2010Q2

REPORT INFORMATION
  Report Type: 
  Country: None (occurrence: None)
  Receive Date: 20100604
  Receipt Date: 20100525
  Transmission Date: 20101027
  Serious: Yes (Death)
  Sender: FDA-Public Use
  Company Number: 603575

PATIENT
  Age: 6 Year
  Sex: Female

DRUGS (3)
  1. DEXTROSE [Suspect]
     Indication: FLUID REPLACEMENT
     Dosage: 200 ML/H, INTRAVENOUS DRIP
     Route: 041
  2. PROMETHAZINE HCL [Concomitant]
  3. (DIPHENHYDRAMINE) [Concomitant]

REACTIONS (17)
  - BRADYCARDIA [None]
  - BRAIN COMPRESSION [None]
  - BRAIN HERNIATION [None]
  - BRAIN OEDEMA [None]
  - DECEREBRATION [None]
  - DRUG DISPENSING ERROR [None]
  - DYSKINESIA [None]
  - DYSTONIA [None]
  - GRAND MAL CONVULSION [None]
  - HAEMATEMESIS [None]
  - HYPONATRAEMIA [None]
  - INCORRECT DOSE ADMINISTERED [None]
  - LETHARGY [None]
  - MUSCLE RIGIDITY [None]
  - PUPIL FIXED [None]
  - UNRESPONSIVE TO STIMULI [None]
  - WATER INTOXICATION [None]
